FAERS Safety Report 17460886 (Version 1)
Quarter: 2020Q1

REPORT INFORMATION
  Report Type: Spontaneous
  Country: BR (occurrence: BR)
  Receive Date: 20200226
  Receipt Date: 20200226
  Transmission Date: 20200409
  Serious: Yes (Other)
  Sender: FDA-Public Use
  Company Number: BR-SA-2020SA031289

PATIENT
  Sex: Male
  Weight: 2.82 kg

DRUGS (3)
  1. RANITIDINE HYDROCHLORIDE. [Suspect]
     Active Substance: RANITIDINE HYDROCHLORIDE
     Dosage: UNK
     Route: 064
  2. DACTIL OB [Suspect]
     Active Substance: PIPERIDOLATE HYDROCHLORIDE
     Dosage: UNK
     Route: 064
  3. KETOPROFEN. [Suspect]
     Active Substance: KETOPROFEN
     Route: 064

REACTIONS (4)
  - Foetal exposure during pregnancy [Unknown]
  - Jaundice [Recovered/Resolved]
  - Ankyloglossia congenital [Unknown]
  - Abdominal pain [Not Recovered/Not Resolved]
